FAERS Safety Report 20571328 (Version 7)
Quarter: 2024Q1

REPORT INFORMATION
  Report Type: Spontaneous
  Country: US (occurrence: US)
  Receive Date: 20220309
  Receipt Date: 20240202
  Transmission Date: 20240410
  Serious: Yes (Hospitalization, Disabling, Other)
  Sender: FDA-Public Use
  Company Number: US-ORGANON-O2203USA000743

PATIENT
  Sex: Male

DRUGS (7)
  1. SINGULAIR [Suspect]
     Active Substance: MONTELUKAST SODIUM
     Dosage: 1 TABLET BY MOUTH EVERY DAY AT NIGHT
     Route: 048
     Dates: start: 2018, end: 202004
  2. PROAIR HFA [Concomitant]
     Active Substance: ALBUTEROL SULFATE
     Indication: Wheezing
     Dosage: INHALE 2 PUFFS (180 MCG TOTAL) BY MOUTH EVERY 4 HOURS AS NEEDED
     Route: 048
  3. PROAIR HFA [Concomitant]
     Active Substance: ALBUTEROL SULFATE
     Indication: Dyspnoea
  4. LIPITOR [Concomitant]
     Active Substance: ATORVASTATIN CALCIUM
     Dosage: TAKE 1 TABLET MOUTH EVERY DAY
     Route: 048
  5. DUPIXENT [Concomitant]
     Active Substance: DUPILUMAB
     Dosage: INJECT UNDER THE SKIN 2 TIMES A DAY, 2 TIMES A WEEK
     Route: 058
  6. DUPIXENT [Concomitant]
     Active Substance: DUPILUMAB
     Dosage: INJECT UNDER THE SKIN 2 TIMES A DAY
     Route: 058
  7. ADVAIR HFA [Concomitant]
     Active Substance: FLUTICASONE PROPIONATE\SALMETEROL XINAFOATE
     Dosage: INHALE 1 PUFF BY MOUTH 2 TIMES DAILY
     Route: 048

REACTIONS (22)
  - Neuropsychological symptoms [Not Recovered/Not Resolved]
  - Depression [Recovering/Resolving]
  - Suicidal ideation [Recovered/Resolved]
  - Dizziness [Unknown]
  - Hypokalaemia [Unknown]
  - Asthma [Unknown]
  - Acute respiratory failure [Unknown]
  - Hypoxia [Unknown]
  - Transient ischaemic attack [Unknown]
  - Large intestinal polypectomy [Unknown]
  - Rotator cuff repair [Unknown]
  - Arthroscopy [Unknown]
  - Major depression [Recovering/Resolving]
  - Frontotemporal dementia [Unknown]
  - Drug ineffective [Unknown]
  - Sleep disorder [Not Recovered/Not Resolved]
  - Vertigo [Unknown]
  - Tremor [Not Recovered/Not Resolved]
  - Tremor [Not Recovered/Not Resolved]
  - Haemorrhoids [Unknown]
  - Seborrhoeic keratosis [Unknown]
  - Hypoaesthesia [Not Recovered/Not Resolved]

NARRATIVE: CASE EVENT DATE: 20190401
